FAERS Safety Report 8479791-9 (Version None)
Quarter: 2012Q2

REPORT INFORMATION
  Report Type: 
  Country: None (occurrence: None)
  Receive Date: 20120629
  Receipt Date: 20120621
  Transmission Date: 20120825
  Serious: Yes (Hospitalization, Other)
  Sender: FDA-Public Use
  Company Number: US-ABBOTT-12P-163-0928332-00

PATIENT
  Sex: Male
  Weight: 63.56 kg

DRUGS (2)
  1. HUMIRA [Suspect]
     Indication: PSORIATIC ARTHROPATHY
     Dates: start: 20080101, end: 20110101
  2. UNKNOWN ADHD DRUG [Concomitant]
     Indication: ATTENTION DEFICIT/HYPERACTIVITY DISORDER

REACTIONS (9)
  - RENAL MASS [None]
  - TESTICULAR MALIGNANT TERATOMA STAGE III [None]
  - WEIGHT DECREASED [None]
  - SURGERY [None]
  - ABDOMINAL PAIN [None]
  - SEPSIS [None]
  - VOMITING [None]
  - PAIN [None]
  - SKELETAL INJURY [None]
